FAERS Safety Report 6054395-6 (Version None)
Quarter: 2009Q1

REPORT INFORMATION
  Report Type: 
  Country: None (occurrence: None)
  Receive Date: 20090123
  Receipt Date: 20090123
  Transmission Date: 20090719
  Serious: Yes (Hospitalization)
  Sender: FDA-Public Use
  Company Number: None

PATIENT
  Age: 84 Year
  Sex: Male
  Weight: 78.1 kg

DRUGS (1)
  1. ABIRATERONE 250MG COUGAR BIOTECHNOLOGY [Suspect]
     Indication: PROSTATE CANCER
     Dosage: 1000MG DAILY BUCCAL
     Route: 002
     Dates: start: 20081217, end: 20090103

REACTIONS (6)
  - BLOOD PRESSURE SYSTOLIC INCREASED [None]
  - DIVERTICULITIS [None]
  - DIVERTICULUM INTESTINAL [None]
  - HAEMOGLOBIN DECREASED [None]
  - RESPIRATORY RATE INCREASED [None]
  - WHITE BLOOD CELL COUNT INCREASED [None]
